FAERS Safety Report 6978894-5 (Version None)
Quarter: 2010Q3

REPORT INFORMATION
  Report Type: 
  Country: None (occurrence: None)
  Receive Date: 20100908
  Receipt Date: 20100830
  Transmission Date: 20110219
  Serious: Yes (Hospitalization)
  Sender: FDA-Public Use
  Company Number: 2010SP002472

PATIENT
  Age: 59 Year
  Sex: Female
  Weight: 77.8 kg

DRUGS (4)
  1. CICLESONIDE HFA (160 UG) [Suspect]
     Indication: RHINITIS PERENNIAL
     Dosage: 160 UG; NASAL
     Route: 045
     Dates: start: 20100322
  2. ADVIL LIQUI-GELS [Concomitant]
  3. CALCIUM [Concomitant]
  4. INFLUENZA  VACCINE [Concomitant]

REACTIONS (4)
  - CARDIAC ENZYMES INCREASED [None]
  - CHEST PAIN [None]
  - GASTROOESOPHAGEAL REFLUX DISEASE [None]
  - TROPONIN INCREASED [None]
